FAERS Safety Report 4596480-1 (Version None)
Quarter: 2005Q1

REPORT INFORMATION
  Report Type: 
  Country: None (occurrence: None)
  Receive Date: 20050302
  Receipt Date: 20050209
  Transmission Date: 20050727
  Serious: Yes (Hospitalization, Other)
  Sender: FDA-Public Use
  Company Number: PHEH2005US01914

PATIENT
  Age: 59 Year
  Sex: Female

DRUGS (1)
  1. ZOMETA [Suspect]
     Indication: OSTEOPENIA
     Dosage: 4 MG, ONCE/SINGLE
     Route: 042
     Dates: start: 20050126, end: 20050126

REACTIONS (18)
  - ARTHRITIS [None]
  - ARTHRITIS INFECTIVE [None]
  - CELLULITIS [None]
  - CHONDROCALCINOSIS PYROPHOSPHATE [None]
  - CONJUNCTIVAL HAEMORRHAGE [None]
  - ERYTHEMA [None]
  - INFLUENZA LIKE ILLNESS [None]
  - MONARTHRITIS [None]
  - MYALGIA [None]
  - NAUSEA [None]
  - OEDEMA PERIPHERAL [None]
  - OSTEOARTHRITIS [None]
  - PAIN IN EXTREMITY [None]
  - PARAESTHESIA [None]
  - PERIARTHRITIS [None]
  - PHLEBITIS [None]
  - PYREXIA [None]
  - WOUND DEBRIDEMENT [None]
